FAERS Safety Report 5135589-0 (Version None)
Quarter: 2006Q4

REPORT INFORMATION
  Report Type: 
  Country: None (occurrence: None)
  Receive Date: 20061026
  Receipt Date: 20061018
  Transmission Date: 20070319
  Serious: Yes (Other)
  Sender: FDA-Public Use
  Company Number: GB-GLAXOSMITHKLINE-B0443256A

PATIENT
  Sex: Male

DRUGS (1)
  1. NIQUITIN CQ 2MG LOZENGE [Suspect]
     Route: 002

REACTIONS (4)
  - ARTHRALGIA [None]
  - INTENTIONAL DRUG MISUSE [None]
  - MUSCLE ATROPHY [None]
  - TREATMENT NONCOMPLIANCE [None]
